FAERS Safety Report 18221307 (Version 2)
Quarter: 2020Q3

REPORT INFORMATION
  Report Type: Spontaneous
  Country: DE (occurrence: DE)
  Receive Date: 20200902
  Receipt Date: 20200914
  Transmission Date: 20201103
  Serious: Yes (Other)
  Sender: FDA-Public Use
  Company Number: DE-TORRENT-00018316

PATIENT
  Weight: 82 kg

DRUGS (1)
  1. LAMOTRIGIN HEUMANN 100 MG TABLETTEN [Suspect]
     Active Substance: LAMOTRIGINE
     Indication: GENERALISED TONIC-CLONIC SEIZURE
     Dosage: THREE TIMES
     Route: 048
     Dates: start: 201910

REACTIONS (3)
  - Loss of consciousness [Not Recovered/Not Resolved]
  - Tic [Not Recovered/Not Resolved]
  - Seizure [Not Recovered/Not Resolved]

NARRATIVE: CASE EVENT DATE: 201912
